FAERS Safety Report 7215580-0 (Version None)
Quarter: 2011Q1

REPORT INFORMATION
  Report Type: 
  Country: None (occurrence: None)
  Receive Date: 20110107
  Receipt Date: 20101221
  Transmission Date: 20110831
  Serious: No
  Sender: FDA-Public Use
  Company Number: DE-ROCHE-751649

PATIENT
  Sex: Female

DRUGS (2)
  1. TAMIFLU [Suspect]
     Indication: INFLUENZA
     Dosage: OVERDOSE
     Route: 048
  2. TAMIFLU [Suspect]
     Route: 048

REACTIONS (2)
  - NO ADVERSE EVENT [None]
  - OVERDOSE [None]
